FAERS Safety Report 20863914 (Version 1)
Quarter: 2022Q2

REPORT INFORMATION
  Report Type: Spontaneous
  Country: AU (occurrence: AU)
  Receive Date: 20220523
  Receipt Date: 20220523
  Transmission Date: 20220721
  Serious: Yes (Other)
  Sender: FDA-Public Use
  Company Number: AU-BoehringerIngelheim-2022-BI-172111

PATIENT
  Age: 2 Year
  Sex: Female

DRUGS (1)
  1. CLONIDINE [Suspect]
     Active Substance: CLONIDINE
     Indication: Product used for unknown indication
     Dosage: UNKOWN AMOUNT OF CLONIDINE 100MCG
     Route: 048

REACTIONS (4)
  - Bradycardia [Unknown]
  - Overdose [Unknown]
  - Hypertension [Unknown]
  - Somnolence [Unknown]
